FAERS Safety Report 7235912-7 (Version None)
Quarter: 2011Q1

REPORT INFORMATION
  Report Type: 
  Country: None (occurrence: None)
  Receive Date: 20110120
  Receipt Date: 20110114
  Transmission Date: 20110831
  Serious: Yes (Hospitalization)
  Sender: FDA-Public Use
  Company Number: A0781089A

PATIENT
  Age: 56 Year
  Sex: Male

DRUGS (8)
  1. GLUCOPHAGE [Concomitant]
  2. GLYBURIDE [Concomitant]
  3. LISINOPRIL [Concomitant]
  4. AVANDIA [Suspect]
     Dosage: 4MG PER DAY
     Route: 065
     Dates: start: 20030501, end: 20070601
  5. AVANDARYL [Suspect]
     Route: 065
  6. ASPIRIN [Concomitant]
  7. AVANDAMET [Suspect]
     Route: 065
  8. SIMVASTATIN [Concomitant]

REACTIONS (3)
  - MYOCARDIAL ISCHAEMIA [None]
  - CORONARY ARTERY DISEASE [None]
  - MYOCARDIAL INFARCTION [None]
